FAERS Safety Report 9772992 (Version 1)
Quarter: 2013Q4

REPORT INFORMATION
  Report Type: Spontaneous
  Country: US (occurrence: US)
  Receive Date: 20131219
  Receipt Date: 20131219
  Transmission Date: 20140711
  Serious: Yes (Other)
  Sender: FDA-Public Use
  Company Number: US-BAYER-2013-152481

PATIENT
  Age: 41 Year
  Sex: Female

DRUGS (1)
  1. GADAVIST [Suspect]
     Indication: CEREBROVASCULAR ACCIDENT
     Dosage: 7.5 ML, ONCE
     Route: 042
     Dates: start: 20131207, end: 20131207

REACTIONS (1)
  - Urticaria [None]
